FAERS Safety Report 7699849-1 (Version None)
Quarter: 2011Q3

REPORT INFORMATION
  Report Type: 
  Country: None (occurrence: None)
  Receive Date: 20110822
  Receipt Date: 20090623
  Transmission Date: 20111222
  Serious: No
  Sender: FDA-Public Use
  Company Number: 2009BI019353

PATIENT
  Age: 29 Year
  Sex: Female

DRUGS (1)
  1. TYSABRI [Suspect]
     Indication: MULTIPLE SCLEROSIS
     Route: 042
     Dates: start: 20090206

REACTIONS (9)
  - ANXIETY [None]
  - GAIT DISTURBANCE [None]
  - HYPOAESTHESIA [None]
  - ANTIBODY TEST POSITIVE [None]
  - DYSSTASIA [None]
  - TEMPERATURE INTOLERANCE [None]
  - DRUG EFFECT DECREASED [None]
  - DERMATITIS CONTACT [None]
  - FATIGUE [None]
